FAERS Safety Report 7318355-7 (Version None)
Quarter: 2011Q1

REPORT INFORMATION
  Report Type: 
  Country: None (occurrence: None)
  Receive Date: 20110217
  Receipt Date: 20110217
  Transmission Date: 20110831
  Serious: Yes (Hospitalization)
  Sender: FDA-Public Use
  Company Number: None

PATIENT
  Age: 88 Year
  Sex: Female
  Weight: 68 kg

DRUGS (11)
  1. LANOXIN [Concomitant]
  2. AMITRIPTYLINE HCL [Concomitant]
  3. PRADAXA [Suspect]
     Indication: ATRIAL FIBRILLATION
     Dosage: 150MG BID PO
     Route: 048
     Dates: start: 20110106, end: 20110110
  4. CEPHALEXIN [Concomitant]
  5. LEVOTHYROXINE [Concomitant]
  6. METOPROLOL SUCCINATE EXTENDED RELEASE [Concomitant]
  7. WARFARIN [Concomitant]
  8. ATORVASTATIN [Concomitant]
  9. FISH OIL CAPS [Concomitant]
  10. FUROSEMIDE [Concomitant]
  11. LEFLUNOMIDE [Concomitant]

REACTIONS (4)
  - SWOLLEN TONGUE [None]
  - BLOOD BILIRUBIN INCREASED [None]
  - LIVER FUNCTION TEST ABNORMAL [None]
  - DYSPEPSIA [None]
